FAERS Safety Report 10455141 (Version 2)
Quarter: 2014Q3

REPORT INFORMATION
  Report Type: Spontaneous
  Country: DE (occurrence: DE)
  Receive Date: 20140916
  Receipt Date: 20140916
  Transmission Date: 20150326
  Serious: Yes (Other)
  Sender: FDA-Public Use
  Company Number: DE-ROCHE-1447205

PATIENT
  Age: 70 Year
  Sex: Male
  Weight: 75 kg

DRUGS (5)
  1. ZELBORAF [Suspect]
     Active Substance: VEMURAFENIB
     Indication: METASTATIC MALIGNANT MELANOMA
     Dosage: 1-0-1
     Route: 048
     Dates: start: 20120509
  2. ZELBORAF [Suspect]
     Active Substance: VEMURAFENIB
     Route: 065
  3. XARELTO [Concomitant]
     Active Substance: RIVAROXABAN
     Dosage: FOR THROMBOSIS PROPHYLAXIS
     Route: 048
     Dates: start: 2013
  4. MINOXIDIL. [Concomitant]
     Active Substance: MINOXIDIL
     Indication: HYPERTENSION
     Route: 048
  5. AMLODIPIN [Concomitant]
     Active Substance: AMLODIPINE BESYLATE
     Indication: HYPERTENSION
     Dosage: DAYS
     Route: 048

REACTIONS (2)
  - Eczema nummular [Recovering/Resolving]
  - Dyshidrotic eczema [Recovering/Resolving]

NARRATIVE: CASE EVENT DATE: 20140430
